FAERS Safety Report 17347539 (Version 2)
Quarter: 2020Q1

REPORT INFORMATION
  Report Type: Spontaneous
  Country: CA (occurrence: CA)
  Receive Date: 20200130
  Receipt Date: 20200320
  Transmission Date: 20200409
  Serious: Yes (Other)
  Sender: FDA-Public Use
  Company Number: CA-PFIZER INC-2017330124

PATIENT
  Age: 51 Year
  Sex: Female

DRUGS (8)
  1. NEXIUM [Concomitant]
     Active Substance: ESOMEPRAZOLE MAGNESIUM
     Dosage: UNK
  2. XELJANZ [Suspect]
     Active Substance: TOFACITINIB CITRATE
     Indication: RHEUMATOID ARTHRITIS
     Dosage: 5 MG, 2X/DAY
     Route: 048
     Dates: start: 20150224, end: 201504
  3. XELJANZ [Suspect]
     Active Substance: TOFACITINIB CITRATE
     Dosage: 5 MG, 2X/DAY, (BID))
     Route: 048
     Dates: start: 20160725
  4. XELJANZ [Suspect]
     Active Substance: TOFACITINIB CITRATE
     Dosage: 5 MG, 2X/DAY, (BID)
     Route: 048
     Dates: start: 20150610, end: 201510
  5. XELJANZ [Suspect]
     Active Substance: TOFACITINIB CITRATE
     Dosage: 5 MG, 2X/DAY, (BID)
     Route: 048
     Dates: start: 2016, end: 20160715
  6. IMOVANE [Concomitant]
     Active Substance: ZOPICLONE
     Dosage: UNK
  7. CELEXA [Concomitant]
     Active Substance: CITALOPRAM HYDROBROMIDE
     Dosage: UNK
  8. XELJANZ [Suspect]
     Active Substance: TOFACITINIB CITRATE
     Dosage: 5 MG, 2X/DAY, (BID)
     Route: 048
     Dates: start: 201510, end: 2016

REACTIONS (4)
  - Visual impairment [Unknown]
  - Osteoarthritis [Unknown]
  - Limb discomfort [Unknown]
  - Stress fracture [Unknown]

NARRATIVE: CASE EVENT DATE: 20180531
